FAERS Safety Report 23348324 (Version 1)
Quarter: 2023Q4

REPORT INFORMATION
  Report Type: Spontaneous
  Country: US (occurrence: US)
  Receive Date: 20231228
  Receipt Date: 20231228
  Transmission Date: 20240109
  Serious: Yes (Other)
  Sender: FDA-Public Use
  Company Number: US-PRINSTON PHARMACEUTICAL INC.-2023PRN00637

PATIENT
  Age: 6 Year
  Sex: Male

DRUGS (1)
  1. CLONIDINE HYDROCHLORIDE [Suspect]
     Active Substance: CLONIDINE HYDROCHLORIDE
     Dosage: 0.05 MG AT NIGHT
     Dates: start: 20231103, end: 202311

REACTIONS (15)
  - Apnoea [Unknown]
  - Irritability [Unknown]
  - Emotional disorder [Unknown]
  - Chest pain [Unknown]
  - Cardiac disorder [Unknown]
  - Nervous system disorder [Unknown]
  - Anger [Unknown]
  - Regressive behaviour [Unknown]
  - Confusional state [Unknown]
  - Pain [Unknown]
  - Feeling hot [Unknown]
  - Dyskinesia [Unknown]
  - Abnormal behaviour [Unknown]
  - Unevaluable event [Unknown]
  - Off label use [Recovered/Resolved]

NARRATIVE: CASE EVENT DATE: 20231103
